FAERS Safety Report 4541100-5 (Version None)
Quarter: 2004Q4

REPORT INFORMATION
  Report Type: 
  Country: None (occurrence: None)
  Receive Date: 20041228
  Receipt Date: 20041119
  Transmission Date: 20050328
  Serious: Yes (Hospitalization, Disabling, Other)
  Sender: FDA-Public Use
  Company Number: BRO-007728

PATIENT
  Age: 59 Year
  Sex: Female

DRUGS (6)
  1. IOPAMIDOL-300 [Suspect]
     Indication: ARTHROGRAM
     Dosage: 0.5 ML IR
     Dates: start: 20040804, end: 20040804
  2. XYLOCAINE HYDROCHLORIDE, (LIDOCAINE HYDROCHLORIDE) [Concomitant]
  3. HYDROCORTANCYL, (PREDNISOLONE) [Concomitant]
  4. MIGPRIV [Concomitant]
  5. ACETAMINOPHEN [Concomitant]
  6. VIDORA, (INDORAMIN) [Concomitant]

REACTIONS (17)
  - ANAESTHETIC COMPLICATION [None]
  - BONE PAIN [None]
  - BRADYCARDIA [None]
  - DYSAESTHESIA [None]
  - HEMIPARESIS [None]
  - HEPATITIS [None]
  - HYPOTENSION [None]
  - MALAISE [None]
  - MOBILITY DECREASED [None]
  - MYELITIS [None]
  - NERVOUS SYSTEM DISORDER [None]
  - PAIN [None]
  - PARAESTHESIA [None]
  - QUADRIPLEGIA [None]
  - SPINAL DISORDER [None]
  - SYNCOPE VASOVAGAL [None]
  - VOMITING [None]
